FAERS Safety Report 6181312-0 (Version None)
Quarter: 2009Q2

REPORT INFORMATION
  Report Type: 
  Country: None (occurrence: None)
  Receive Date: 20090506
  Receipt Date: 20090504
  Transmission Date: 20091009
  Serious: Yes (Other)
  Sender: FDA-Public Use
  Company Number: US-BRISTOL-MYERS SQUIBB COMPANY-14610471

PATIENT
  Age: 73 Year
  Sex: Female
  Weight: 75 kg

DRUGS (6)
  1. ORENCIA [Suspect]
     Indication: RHEUMATOID ARTHRITIS
     Route: 042
     Dates: start: 20081001
  2. LISINOPRIL [Concomitant]
  3. PRAVACHOL [Concomitant]
  4. FOLIC ACID [Concomitant]
  5. ASPIRIN [Concomitant]
  6. CLARINEX [Concomitant]

REACTIONS (1)
  - WHITE BLOOD CELL COUNT INCREASED [None]
